FAERS Safety Report 4866661-8 (Version None)
Quarter: 2005Q4

REPORT INFORMATION
  Report Type: 
  Country: None (occurrence: None)
  Receive Date: 20051221
  Receipt Date: 20051206
  Transmission Date: 20060501
  Serious: Yes (Other)
  Sender: FDA-Public Use
  Company Number: 13076

PATIENT
  Sex: Male

DRUGS (1)
  1. PAMIDRONATE DISODIUM [Suspect]
     Dosage: 90 MG MONTHLY IV
     Route: 042

REACTIONS (4)
  - ANOREXIA [None]
  - CHEST PAIN [None]
  - HEADACHE [None]
  - NAUSEA [None]
